FAERS Safety Report 20209249 (Version 2)
Quarter: 2021Q4

REPORT INFORMATION
  Report Type: Spontaneous
  Country: FR (occurrence: FR)
  Receive Date: 20211220
  Receipt Date: 20211228
  Transmission Date: 20220303
  Serious: Yes (Life-Threatening, Hospitalization)
  Sender: FDA-Public Use
  Company Number: FR-ROCHE-2953462

PATIENT
  Age: 17 Year
  Sex: Female

DRUGS (2)
  1. CYCLOPHOSPHAMIDE [Suspect]
     Active Substance: CYCLOPHOSPHAMIDE
     Indication: Neutropenia
     Route: 065
  2. RITUXIMAB [Suspect]
     Active Substance: RITUXIMAB
     Indication: Neutropenia
     Route: 065

REACTIONS (7)
  - Sinusitis [Unknown]
  - Septic embolus [Unknown]
  - Brain compression [Unknown]
  - Brain abscess [Unknown]
  - Aspergillus infection [Unknown]
  - Fungal endocarditis [Unknown]
  - Aspergillus infection [Unknown]
